FAERS Safety Report 8216401-X (Version None)
Quarter: 2012Q1

REPORT INFORMATION
  Report Type: 
  Country: None (occurrence: None)
  Receive Date: 20120316
  Receipt Date: 20120314
  Transmission Date: 20120608
  Serious: Yes (Life-Threatening, Hospitalization, Other)
  Sender: FDA-Public Use
  Company Number: PHHY2012BR016506

PATIENT
  Age: 77 Year
  Sex: Female

DRUGS (13)
  1. FORMOTEROL FUMARATE [Concomitant]
  2. BEROTEC [Concomitant]
  3. FORADIL [Suspect]
     Indication: BRONCHOSPASM
  4. LEVOTHYROXINE SODIUM [Concomitant]
     Indication: THYROID DISORDER
  5. PREDNISOLONE [Concomitant]
     Indication: WHEEZING
     Dosage: UNK
  6. ACETYLCYSTEINE [Concomitant]
     Indication: INFLUENZA
     Dosage: UNK
  7. FORMOTEROL FUMARATE [Suspect]
     Indication: CHRONIC OBSTRUCTIVE PULMONARY DISEASE
     Dosage: 3 DF, QD
  8. ATROVENT [Concomitant]
     Dosage: 20 DRP, UNK
  9. FORADIL [Suspect]
     Indication: BRONCHITIS
  10. PANTOPRAZOLE [Concomitant]
     Dosage: UNK MG, UNK
  11. TARGIFOR [Concomitant]
  12. VITAMIN TAB [Concomitant]
  13. DIOVAN [Concomitant]
     Indication: HYPERTENSION
     Dosage: 1 DF, QD
     Dates: start: 20111201

REACTIONS (14)
  - FEELING HOT [None]
  - ASTHMA [None]
  - PULMONARY CONGESTION [None]
  - IMMUNODEFICIENCY [None]
  - COMA [None]
  - BLOOD PRESSURE INCREASED [None]
  - CAPILLARY FRAGILITY [None]
  - TREMOR [None]
  - HYPOAESTHESIA [None]
  - INFLUENZA [None]
  - SKIN DISCOLOURATION [None]
  - MEMORY IMPAIRMENT [None]
  - MALAISE [None]
  - HEAD DISCOMFORT [None]
